FAERS Safety Report 12878475 (Version 2)
Quarter: 2016Q4

REPORT INFORMATION
  Report Type: Spontaneous
  Country: US (occurrence: US)
  Receive Date: 20161024
  Receipt Date: 20161109
  Transmission Date: 20170207
  Serious: Yes (Hospitalization)
  Sender: FDA-Public Use
  Company Number: US-UNITED THERAPEUTICS-UNT-2016-016208

PATIENT
  Age: 1 Year
  Sex: Female
  Weight: 10.34 kg

DRUGS (1)
  1. REMODULIN [Suspect]
     Active Substance: TREPROSTINIL
     Indication: PULMONARY HYPERTENSION
     Dosage: 0.049 ?G/KG, CONTINUING
     Route: 058
     Dates: start: 20150430

REACTIONS (6)
  - Nasal congestion [Not Recovered/Not Resolved]
  - Neutropenia [Not Recovered/Not Resolved]
  - Ear infection [Unknown]
  - Rhinovirus infection [Unknown]
  - Pyrexia [Recovered/Resolved]
  - Nasopharyngitis [Not Recovered/Not Resolved]

NARRATIVE: CASE EVENT DATE: 201610
